FAERS Safety Report 9563750 (Version 1)
Quarter: 2013Q3

REPORT INFORMATION
  Report Type: Spontaneous
  Country: US (occurrence: None)
  Receive Date: 20130926
  Receipt Date: 20130926
  Transmission Date: 20140515
  Serious: Yes (Other)
  Sender: FDA-Public Use
  Company Number: 2013SA093172

PATIENT
  Sex: 0

DRUGS (1)
  1. ASPERCREME HEAT RELIEVING GEL [Suspect]

REACTIONS (1)
  - Thermal burn [None]
